FAERS Safety Report 21821044 (Version 1)
Quarter: 2023Q1

REPORT INFORMATION
  Report Type: Spontaneous
  Country: FR (occurrence: FR)
  Receive Date: 20230105
  Receipt Date: 20230105
  Transmission Date: 20230418
  Serious: Yes (Death, Other)
  Sender: FDA-Public Use
  Company Number: None

PATIENT
  Age: 79 Year
  Sex: Female
  Weight: 114 kg

DRUGS (10)
  1. ELIQUIS [Suspect]
     Active Substance: APIXABAN
     Indication: Thrombosis prophylaxis
     Route: 048
     Dates: start: 20221205, end: 20221207
  2. ELIQUIS [Suspect]
     Active Substance: APIXABAN
     Route: 048
     Dates: end: 20221205
  3. LOVENOX [Suspect]
     Active Substance: ENOXAPARIN SODIUM
     Indication: Pulmonary embolism
     Route: 058
     Dates: start: 20221207, end: 20221212
  4. LAMOTRIGINE [Concomitant]
     Active Substance: LAMOTRIGINE
     Indication: Idiopathic generalised epilepsy
  5. ATORVASTATIN [Concomitant]
     Active Substance: ATORVASTATIN
     Indication: Dyslipidaemia
  6. PERINDOPRIL [Concomitant]
     Active Substance: PERINDOPRIL
     Indication: Hypertension
  7. LEVOTHYROXINE [Concomitant]
     Active Substance: LEVOTHYROXINE
     Indication: Hypothyroidism
  8. MIANSERIN HYDROCHLORIDE [Concomitant]
     Active Substance: MIANSERIN HYDROCHLORIDE
     Indication: Depression
  9. PHENOBARBITAL [Concomitant]
     Active Substance: PHENOBARBITAL
     Indication: Idiopathic generalised epilepsy
  10. PAROXETINE [Concomitant]
     Active Substance: PAROXETINE
     Indication: Depression

REACTIONS (1)
  - Intra-abdominal haematoma [Fatal]

NARRATIVE: CASE EVENT DATE: 20221212
